FAERS Safety Report 5307856-9 (Version None)
Quarter: 2007Q2

REPORT INFORMATION
  Report Type: 
  Country: None (occurrence: None)
  Receive Date: 20070419
  Receipt Date: 20070406
  Transmission Date: 20071010
  Serious: Yes (Other)
  Sender: FDA-Public Use
  Company Number: A-NJ2007-13978

PATIENT
  Age: 74 Year
  Sex: Female
  Weight: 86.6 kg

DRUGS (2)
  1. TRACLEER [Suspect]
     Indication: PULMONARY HYPERTENSION
     Dosage: 62.5 MG, BID
     Dates: start: 20070319, end: 20070322
  2. TRACLEER [Suspect]
     Dosage: 62.5 MG, BID, ORAL
     Route: 048
     Dates: start: 20070106, end: 20070119

REACTIONS (2)
  - BLOOD PRESSURE INCREASED [None]
  - HOT FLUSH [None]
